FAERS Safety Report 26023095 (Version 1)
Quarter: 2025Q4

REPORT INFORMATION
  Report Type: Spontaneous
  Country: ZA (occurrence: ZA)
  Receive Date: 20251110
  Receipt Date: 20251110
  Transmission Date: 20260117
  Serious: Yes (Hospitalization)
  Sender: JOHNSON AND JOHNSON
  Company Number: ZA-JNJFOC-20251142405

PATIENT
  Sex: Male

DRUGS (4)
  1. RYBREVANT [Suspect]
     Active Substance: AMIVANTAMAB-VMJW
     Indication: Product used for unknown indication
     Route: 065
     Dates: start: 20251028
  2. CARBOPLATIN [Concomitant]
     Active Substance: CARBOPLATIN
     Indication: Product used for unknown indication
  3. PEMETREXED [Concomitant]
     Active Substance: PEMETREXED
     Indication: Product used for unknown indication
  4. OSIMERTINIB [Concomitant]
     Active Substance: OSIMERTINIB
     Indication: Product used for unknown indication

REACTIONS (1)
  - Cardiac disorder [Recovered/Resolved with Sequelae]

NARRATIVE: CASE EVENT DATE: 20251028
